FAERS Safety Report 9848478 (Version 1)
Quarter: 2014Q1

REPORT INFORMATION
  Report Type: Spontaneous
  Country: US (occurrence: US)
  Receive Date: 20140128
  Receipt Date: 20140128
  Transmission Date: 20141002
  Serious: Yes (Disabling)
  Sender: FDA-Public Use
  Company Number: US-GE HEALTHCARE MEDICAL DIAGNOSTICS-OSCN-PR-1312S-0157

PATIENT
  Age: 45 Year
  Sex: Female

DRUGS (19)
  1. OMNISCAN [Suspect]
     Indication: BUDD-CHIARI SYNDROME
     Route: 042
     Dates: start: 20020920, end: 20020920
  2. OMNISCAN [Suspect]
     Indication: ABDOMINAL PAIN
     Route: 042
     Dates: start: 20060418, end: 20060418
  3. OMNISCAN [Suspect]
     Indication: OVARIAN MASS
  4. MAGNEVIST [Suspect]
     Indication: NEPHRECTOMY
     Route: 042
     Dates: start: 20060524, end: 20060524
  5. MULTIHANCE [Suspect]
     Indication: RENAL VEIN THROMBOSIS
     Route: 042
     Dates: start: 20070406, end: 20070406
  6. SYNTHROID [Concomitant]
  7. MIDODRINE [Concomitant]
  8. LACTULOSE [Concomitant]
  9. ERYTHROPOETIN [Concomitant]
  10. NEPHROCAP [Concomitant]
  11. RENAGEL [Concomitant]
  12. TEMAZEPAM [Concomitant]
  13. POTASSIUM CHLORIDE [Concomitant]
  14. HYDROCORTISONE [Concomitant]
  15. MEROPENEM [Concomitant]
  16. IMURAN [Concomitant]
  17. PAROXETINE [Concomitant]
  18. CELLCEPT [Concomitant]
  19. DECADRON [Concomitant]

REACTIONS (1)
  - Nephrogenic systemic fibrosis [Not Recovered/Not Resolved]
